FAERS Safety Report 22266727 (Version 1)
Quarter: 2023Q2

REPORT INFORMATION
  Report Type: Spontaneous
  Country: US (occurrence: US)
  Receive Date: 20230428
  Receipt Date: 20230428
  Transmission Date: 20230722
  Serious: No
  Sender: FDA-Public Use
  Company Number: US-BIOGEN-2017BI00445868

PATIENT
  Age: 62 Year
  Sex: Female

DRUGS (9)
  1. TECFIDERA [Suspect]
     Active Substance: DIMETHYL FUMARATE
     Indication: Multiple sclerosis
     Route: 050
     Dates: start: 20150218
  2. TECFIDERA [Suspect]
     Active Substance: DIMETHYL FUMARATE
     Dosage: STARTING DOSE
     Route: 050
  3. TECFIDERA [Suspect]
     Active Substance: DIMETHYL FUMARATE
     Dosage: MAINTENANCE DOSE
     Route: 050
  4. CALCIUM [Concomitant]
     Active Substance: CALCIUM
     Route: 050
  5. LEVOTHYROXINE SODIUM [Concomitant]
     Active Substance: LEVOTHYROXINE SODIUM
     Route: 050
  6. MONTELUKAST SODIUM [Concomitant]
     Active Substance: MONTELUKAST SODIUM
     Route: 050
  7. VITAMIN D3 [Concomitant]
     Active Substance: CHOLECALCIFEROL
     Route: 050
  8. CLONAZEPAM [Concomitant]
     Active Substance: CLONAZEPAM
     Route: 050
  9. VITAMIN B12 [Concomitant]
     Active Substance: CYANOCOBALAMIN
     Route: 050

REACTIONS (25)
  - Mobility decreased [Unknown]
  - Decreased appetite [Unknown]
  - Depression [Unknown]
  - Insomnia [Unknown]
  - Muscle atrophy [Unknown]
  - Muscle spasms [Unknown]
  - Gait disturbance [Unknown]
  - Pain in extremity [Unknown]
  - Fatigue [Unknown]
  - White blood cell count decreased [Unknown]
  - Back pain [Recovered/Resolved]
  - Weight decreased [Recovered/Resolved]
  - Acne [Recovered/Resolved]
  - Neuralgia [Recovered/Resolved]
  - Malaise [Recovered/Resolved]
  - Pain [Recovered/Resolved]
  - Agitation [Recovered/Resolved]
  - Neck pain [Recovered/Resolved]
  - Feeding disorder [Recovered/Resolved]
  - Multiple sclerosis [Unknown]
  - Nausea [Unknown]
  - Lymphocyte count decreased [Unknown]
  - Rash [Recovered/Resolved]
  - Flushing [Recovered/Resolved]
  - Herpes zoster [Recovered/Resolved]

NARRATIVE: CASE EVENT DATE: 20150218
